FAERS Safety Report 19725999 (Version 1)
Quarter: 2021Q3

REPORT INFORMATION
  Report Type: Spontaneous
  Country: US (occurrence: US)
  Receive Date: 20210819
  Receipt Date: 20210819
  Transmission Date: 20211014
  Serious: No
  Sender: FDA-Public Use
  Company Number: US-MANNKIND CORPORATION-2021MK000029

PATIENT
  Age: 69 Year
  Sex: Female

DRUGS (9)
  1. AFREZZA [Suspect]
     Active Substance: INSULIN HUMAN
     Indication: TYPE 1 DIABETES MELLITUS
     Dates: start: 20210122
  2. LANTUS [Suspect]
     Active Substance: INSULIN GLARGINE
     Indication: TYPE 1 DIABETES MELLITUS
  3. LANTUS [Suspect]
     Active Substance: INSULIN GLARGINE
     Dates: start: 20210127
  4. AMLODIPINE [Concomitant]
     Active Substance: AMLODIPINE BESYLATE
     Indication: HYPERTENSION
  5. LOSARTAN. [Concomitant]
     Active Substance: LOSARTAN
     Indication: HYPERTENSION
  6. AFREZZA [Suspect]
     Active Substance: INSULIN HUMAN
     Dates: start: 20210122
  7. ATORVASTATIN [Concomitant]
     Active Substance: ATORVASTATIN
     Indication: PRODUCT USED FOR UNKNOWN INDICATION
  8. AFREZZA [Suspect]
     Active Substance: INSULIN HUMAN
     Dates: start: 20210122
  9. LEVOTHYROXINE. [Concomitant]
     Active Substance: LEVOTHYROXINE
     Indication: THYROIDECTOMY

REACTIONS (4)
  - Blood glucose decreased [Unknown]
  - Therapeutic product effect decreased [Recovered/Resolved]
  - Product taste abnormal [Unknown]
  - Blood glucose increased [Unknown]

NARRATIVE: CASE EVENT DATE: 20210122
